FAERS Safety Report 9372046 (Version 1)
Quarter: 2013Q2

REPORT INFORMATION
  Report Type: Spontaneous
  Country: JP (occurrence: None)
  Receive Date: 20130625
  Receipt Date: 20130625
  Transmission Date: 20140414
  Serious: Yes (Death, Other)
  Sender: FDA-Public Use
  Company Number: 2013P1008702

PATIENT
  Sex: 0

DRUGS (1)
  1. IRINOTECAN [Suspect]
     Indication: CHEMOTHERAPY

REACTIONS (1)
  - Cardiac failure [None]
